FAERS Safety Report 9825374 (Version 2)
Quarter: 2014Q1

REPORT INFORMATION
  Report Type: Spontaneous
  Country: US (occurrence: US)
  Receive Date: 20140117
  Receipt Date: 20140318
  Transmission Date: 20141002
  Serious: No
  Sender: FDA-Public Use
  Company Number: US-PFIZER INC-2014013393

PATIENT
  Age: 72 Year
  Sex: Male
  Weight: 127 kg

DRUGS (4)
  1. DEPO-TESTOSTERONE [Suspect]
     Indication: BLOOD TESTOSTERONE DECREASED
     Dosage: 200 MG, EVERY TWO WEEKS
     Route: 030
     Dates: start: 20130806, end: 201401
  2. CETRIZINE [Concomitant]
     Indication: DEPRESSION
     Dosage: 10 MG, UNK
  3. FINASTERIDE [Concomitant]
     Indication: BENIGN PROSTATIC HYPERPLASIA
     Dosage: 5 MG, UNK
  4. SILDENAFIL [Concomitant]
     Indication: ERECTILE DYSFUNCTION
     Dosage: 100 MG, UNK

REACTIONS (2)
  - Injection site pain [Recovered/Resolved]
  - Product quality issue [Recovered/Resolved]
